FAERS Safety Report 11342257 (Version 3)
Quarter: 2015Q4

REPORT INFORMATION
  Report Type: Spontaneous
  Country: US (occurrence: US)
  Receive Date: 20150805
  Receipt Date: 20151102
  Transmission Date: 20160304
  Serious: Yes (Other)
  Sender: FDA-Public Use
  Company Number: US-PFIZER INC-2015259320

PATIENT
  Age: 64 Year
  Sex: Male
  Weight: 59 kg

DRUGS (9)
  1. LYRICA [Suspect]
     Active Substance: PREGABALIN
     Indication: PAIN
     Dosage: 75 MG IN THE MORNING, 25 MG AT NOON AND 75 MG AT NIGHT
  2. AVINZA [Concomitant]
     Active Substance: MORPHINE SULFATE
     Indication: FIBROMYALGIA
  3. HYDROCODONE [Concomitant]
     Active Substance: HYDROCODONE
     Dosage: 5/325MG
  4. LYRICA [Suspect]
     Active Substance: PREGABALIN
     Indication: PARAESTHESIA
     Dosage: 50 MG, 1X/DAY, AT NIGHT
  5. LYRICA [Suspect]
     Active Substance: PREGABALIN
     Indication: PERIPHERAL SWELLING
  6. AVINZA [Concomitant]
     Active Substance: MORPHINE SULFATE
     Indication: BACK PAIN
     Dosage: 75 MG, 1X/DAY, AT NIGHT
  7. ASPIRIN. [Concomitant]
     Active Substance: ASPIRIN
     Dosage: 325 MG, DAILY
     Route: 048
  8. LYRICA [Suspect]
     Active Substance: PREGABALIN
     Indication: BURNING SENSATION
  9. ATACAND [Concomitant]
     Active Substance: CANDESARTAN CILEXETIL
     Indication: BLOOD PRESSURE ABNORMAL
     Dosage: UNK, 1X/DAY

REACTIONS (11)
  - Euphoric mood [Unknown]
  - Peripheral swelling [Unknown]
  - Parkinson^s disease [Not Recovered/Not Resolved]
  - Blood pressure increased [Unknown]
  - Eye irritation [Not Recovered/Not Resolved]
  - Vision blurred [Not Recovered/Not Resolved]
  - Heart rate decreased [Recovering/Resolving]
  - Ocular hyperaemia [Unknown]
  - Lacrimation increased [Unknown]
  - Somnolence [Unknown]
  - Drug ineffective [Unknown]

NARRATIVE: CASE EVENT DATE: 2015
